FAERS Safety Report 4699888-9 (Version None)
Quarter: 2005Q2

REPORT INFORMATION
  Report Type: 
  Country: None (occurrence: None)
  Receive Date: 20050624
  Receipt Date: 20050214
  Transmission Date: 20051028
  Serious: Yes (Hospitalization)
  Sender: FDA-Public Use
  Company Number: US-MERCK-0502USA01888

PATIENT
  Age: 34 Year
  Sex: Female
  Weight: 91 kg

DRUGS (8)
  1. VIOXX [Suspect]
     Indication: RHEUMATOID ARTHRITIS
     Route: 048
     Dates: end: 20031101
  2. VIOXX [Suspect]
     Route: 048
     Dates: start: 19990101
  3. VIOXX [Suspect]
     Route: 048
  4. VIOXX [Suspect]
     Indication: OSTEOARTHRITIS
     Route: 048
     Dates: end: 20031101
  5. VIOXX [Suspect]
     Route: 048
     Dates: start: 19990101
  6. VIOXX [Suspect]
     Route: 048
  7. ATACAND [Concomitant]
     Indication: HYPERTENSION
     Route: 048
  8. HYDROCHLOROTHIAZIDE AND METOPROLOL TARTRATE [Concomitant]
     Indication: HYPERTENSION
     Route: 048

REACTIONS (22)
  - ANGINA PECTORIS [None]
  - ARTHRALGIA [None]
  - BLOOD PRESSURE INADEQUATELY CONTROLLED [None]
  - CORONARY ARTERY OCCLUSION [None]
  - DEPRESSION [None]
  - DIARRHOEA [None]
  - DIASTOLIC DYSFUNCTION [None]
  - GASTROOESOPHAGEAL REFLUX DISEASE [None]
  - HAEMATOCHEZIA [None]
  - HYPERLIPIDAEMIA [None]
  - HYPERTENSION [None]
  - PALPITATIONS [None]
  - PANIC ATTACK [None]
  - POLYP [None]
  - POST-TRAUMATIC STRESS DISORDER [None]
  - SLEEP APNOEA SYNDROME [None]
  - SUPRAVENTRICULAR EXTRASYSTOLES [None]
  - SUPRAVENTRICULAR TACHYCARDIA [None]
  - UPPER RESPIRATORY TRACT INFECTION [None]
  - VENTRICULAR EXTRASYSTOLES [None]
  - VENTRICULAR HYPERTROPHY [None]
  - WOLFF-PARKINSON-WHITE SYNDROME [None]
